FAERS Safety Report 7797254-0 (Version None)
Quarter: 2011Q4

REPORT INFORMATION
  Report Type: 
  Country: None (occurrence: None)
  Receive Date: 20111003
  Receipt Date: 20110926
  Transmission Date: 20120403
  Serious: Yes (Death)
  Sender: FDA-Public Use
  Company Number: DSA_47728_2011

PATIENT
  Age: 60 Year
  Sex: Male

DRUGS (1)
  1. XENAZINE [Suspect]
     Indication: DYSKINESIA
     Dosage: (25 MG QID ORAL)
     Route: 048
     Dates: start: 20090424, end: 20110830

REACTIONS (1)
  - DEATH [None]
